FAERS Safety Report 15395265 (Version 2)
Quarter: 2018Q3

REPORT INFORMATION
  Report Type: Spontaneous
  Country: US (occurrence: US)
  Receive Date: 20180918
  Receipt Date: 20180926
  Transmission Date: 20181010
  Serious: No
  Sender: FDA-Public Use
  Company Number: US-PFIZER INC-2018376002

PATIENT
  Age: 84 Year
  Sex: Female

DRUGS (1)
  1. LYRICA [Suspect]
     Active Substance: PREGABALIN
     Indication: HERPES ZOSTER
     Dosage: UNK UNK, 3X/DAY (20 MG/CC ORAL SOLUTION / 3,75 CC PO TID/
     Route: 048

REACTIONS (2)
  - Pain [Unknown]
  - Malaise [Unknown]
